FAERS Safety Report 13754085 (Version 1)
Quarter: 2017Q3

REPORT INFORMATION
  Report Type: Spontaneous
  Country: US (occurrence: US)
  Receive Date: 20170714
  Receipt Date: 20170714
  Transmission Date: 20171127
  Serious: Yes (Disabling)
  Sender: FDA-Public Use
  Company Number: None

PATIENT
  Age: 56 Year
  Sex: Female
  Weight: 50 kg

DRUGS (1)
  1. TRIAMCINOLONE ACETONIDE. [Suspect]
     Active Substance: TRIAMCINOLONE ACETONIDE
     Dosage: ?          OTHER DOSE:MG;OTHER FREQUENCY:ONCE;?
     Route: 030
     Dates: start: 20170301, end: 20170301

REACTIONS (1)
  - Skin atrophy [None]

NARRATIVE: CASE EVENT DATE: 20170301
